FAERS Safety Report 6444503-7 (Version None)
Quarter: 2009Q4

REPORT INFORMATION
  Report Type: 
  Country: None (occurrence: None)
  Receive Date: 20091118
  Receipt Date: 20091106
  Transmission Date: 20100525
  Serious: Yes (Hospitalization)
  Sender: FDA-Public Use
  Company Number: JP-PFIZER INC-2009298051

PATIENT
  Sex: Female

DRUGS (1)
  1. CELECOX [Suspect]
     Dosage: 100 MG, 2X/DAY
     Route: 048

REACTIONS (1)
  - DRUG ERUPTION [None]
